FAERS Safety Report 11779821 (Version 4)
Quarter: 2016Q1

REPORT INFORMATION
  Report Type: Spontaneous
  Country: GB (occurrence: GB)
  Receive Date: 20151125
  Receipt Date: 20160105
  Transmission Date: 20160525
  Serious: Yes (Other)
  Sender: FDA-Public Use
  Company Number: GB-WATSON-2015-24751

PATIENT
  Age: 89 Year
  Sex: Female
  Weight: 50.8 kg

DRUGS (4)
  1. DORZOLAMIDE (UNKNOWN) [Suspect]
     Active Substance: DORZOLAMIDE
     Indication: GLAUCOMA
     Dosage: 1 DF, BID, EVERY 12 HOURS, TO BOTH EYES
     Route: 047
     Dates: start: 20150113, end: 20150611
  2. GANFORT [Concomitant]
     Active Substance: BIMATOPROST\TIMOLOL
     Indication: GLAUCOMA
     Dosage: DF, QAM, TO BOTH EYES
     Route: 047
     Dates: start: 20140903
  3. AZOPT [Suspect]
     Active Substance: BRINZOLAMIDE
     Indication: GLAUCOMA
     Dosage: 1 DF, BID, TO BOTH EYES
     Route: 047
     Dates: start: 20150611, end: 20151001
  4. BRINZOLAMIDE (UNKNOWN) [Suspect]
     Active Substance: BRINZOLAMIDE
     Indication: GLAUCOMA
     Dosage: 1 DF, BID, TO BOTH EYES
     Route: 047
     Dates: start: 20150611, end: 20151001

REACTIONS (4)
  - Dyspnoea [Recovered/Resolved]
  - Epistaxis [Recovered/Resolved]
  - Malaise [Recovered/Resolved]
  - Dizziness [Unknown]

NARRATIVE: CASE EVENT DATE: 20150627
